FAERS Safety Report 4336697-4 (Version None)
Quarter: 2004Q2

REPORT INFORMATION
  Report Type: 
  Country: None (occurrence: None)
  Receive Date: 20040408
  Receipt Date: 20040405
  Transmission Date: 20050107
  Serious: Yes (Other)
  Sender: FDA-Public Use
  Company Number: 2004-03-2050

PATIENT
  Age: 69 Year
  Sex: Male

DRUGS (5)
  1. CLARITIN-D 24 HOUR [Suspect]
     Dosage: 1 TAB Q 12HR ORAL
     Route: 048
     Dates: start: 20040314, end: 20040315
  2. . [Concomitant]
  3. ISOSORBIDE [Concomitant]
  4. ASPIRIN [Concomitant]
  5. MULTI-VITAMINS [Concomitant]

REACTIONS (2)
  - DIZZINESS [None]
  - LOSS OF CONSCIOUSNESS [None]
